FAERS Safety Report 5471120-8 (Version None)
Quarter: 2007Q3

REPORT INFORMATION
  Report Type: 
  Country: None (occurrence: None)
  Receive Date: 20070928
  Receipt Date: 20061016
  Transmission Date: 20080115
  Serious: No
  Sender: FDA-Public Use
  Company Number: A0623730A

PATIENT
  Age: 25 Year
  Sex: Male

DRUGS (1)
  1. EPIVIR-HBV [Suspect]
     Dosage: 1TAB PER DAY
     Route: 048
     Dates: end: 20060101

REACTIONS (1)
  - HBV DNA INCREASED [None]
